FAERS Safety Report 25166319 (Version 2)
Quarter: 2025Q2

REPORT INFORMATION
  Report Type: Spontaneous
  Country: US (occurrence: US)
  Receive Date: 20250407
  Receipt Date: 20250507
  Transmission Date: 20250717
  Serious: No
  Sender: GLAXOSMITHKLINE
  Company Number: US-GSK-US2025035392

PATIENT
  Age: 83 Year
  Sex: Female

DRUGS (9)
  1. INCRUSE ELLIPTA [Interacting]
     Active Substance: UMECLIDINIUM BROMIDE
     Indication: Bronchiectasis
     Dosage: 1 PUFF(S), QD 62.5 MCG
     Route: 048
     Dates: start: 20250321
  2. INCRUSE ELLIPTA [Interacting]
     Active Substance: UMECLIDINIUM BROMIDE
     Indication: Pneumonia pseudomonal
  3. IPRATROPIUM [Interacting]
     Active Substance: IPRATROPIUM
     Indication: Bronchiectasis
     Dosage: UNK UNK, BID
  4. IPRATROPIUM [Interacting]
     Active Substance: IPRATROPIUM
     Indication: Pseudomonas infection
  5. FLECAINIDE [Concomitant]
     Active Substance: FLECAINIDE
     Indication: Atrial fibrillation
     Dosage: UNK, BID
     Route: 048
  6. FORMOTEROL [Concomitant]
     Active Substance: FORMOTEROL
     Indication: Bronchiectasis
     Dosage: UNK, BID
  7. FORMOTEROL [Concomitant]
     Active Substance: FORMOTEROL
     Indication: Pneumonia pseudomonal
  8. BUDESONIDE [Concomitant]
     Active Substance: BUDESONIDE
     Indication: Bronchiectasis
     Dosage: UNK UNK, BID
  9. BUDESONIDE [Concomitant]
     Active Substance: BUDESONIDE
     Indication: Pneumonia pseudomonal

REACTIONS (3)
  - Labelled drug-drug interaction issue [Unknown]
  - Off label use [Unknown]
  - Product dose omission issue [Unknown]

NARRATIVE: CASE EVENT DATE: 20250321
